FAERS Safety Report 7508681-0 (Version None)
Quarter: 2011Q2

REPORT INFORMATION
  Report Type: 
  Country: None (occurrence: None)
  Receive Date: 20110527
  Receipt Date: 20100618
  Transmission Date: 20111010
  Serious: No
  Sender: FDA-Public Use
  Company Number: A0866101A

PATIENT
  Sex: Female

DRUGS (1)
  1. VENTOLIN [Suspect]
     Route: 055

REACTIONS (2)
  - THERMAL BURN [None]
  - PRODUCT QUALITY ISSUE [None]
